FAERS Safety Report 21490527 (Version 1)
Quarter: 2022Q4

REPORT INFORMATION
  Report Type: Spontaneous
  Country: US (occurrence: US)
  Receive Date: 20221021
  Receipt Date: 20221021
  Transmission Date: 20230112
  Serious: No
  Sender: FDA-Public Use
  Company Number: US-CELLTRION INC.-2022US013222

PATIENT

DRUGS (2)
  1. INFLECTRA [Suspect]
     Active Substance: INFLIXIMAB-DYYB
     Indication: Product used for unknown indication
     Dosage: INJECT 5 MG/KG, EVERY 8 WEEKS QUANTITY: (BLANK) REFILLS: 11
  2. INFLECTRA [Suspect]
     Active Substance: INFLIXIMAB-DYYB
     Dosage: INFUSION EVERY 6 WEEKS QUANTITY: (10KG/MG) REFILLS: 11

REACTIONS (1)
  - Unevaluable event [Unknown]
